FAERS Safety Report 8271624-9 (Version None)
Quarter: 2012Q2

REPORT INFORMATION
  Report Type: 
  Country: None (occurrence: None)
  Receive Date: 20120410
  Receipt Date: 20120402
  Transmission Date: 20120825
  Serious: Yes (Death)
  Sender: FDA-Public Use
  Company Number: US-GLAXOSMITHKLINE-A0972036A

PATIENT
  Age: 50 Year
  Sex: Male

DRUGS (6)
  1. LAMICTAL [Suspect]
     Indication: EPILEPSY
     Dosage: 500MG PER DAY
     Route: 048
     Dates: start: 19920101
  2. CLONAZEPAM [Concomitant]
  3. CARVEDILOL [Concomitant]
     Dosage: 3.125MG TWICE PER DAY
  4. VIMPAT [Concomitant]
  5. PRAVASTATIN [Concomitant]
  6. MORPHINE [Concomitant]

REACTIONS (1)
  - MYOCARDIAL INFARCTION [None]
